FAERS Safety Report 5759620-4 (Version None)
Quarter: 2008Q2

REPORT INFORMATION
  Report Type: 
  Country: None (occurrence: None)
  Receive Date: 20080605
  Receipt Date: 20080528
  Transmission Date: 20081010
  Serious: Yes (Other)
  Sender: FDA-Public Use
  Company Number: US-JNJFOC-20080600081

PATIENT
  Sex: Female
  Weight: 54.43 kg

DRUGS (1)
  1. INVEGA [Suspect]
     Indication: DEPRESSION
     Route: 048

REACTIONS (5)
  - BRUXISM [None]
  - EXTRAPYRAMIDAL DISORDER [None]
  - HYPERSENSITIVITY [None]
  - MUSCULOSKELETAL STIFFNESS [None]
  - TREMOR [None]
